FAERS Safety Report 21737751 (Version 4)
Quarter: 2024Q1

REPORT INFORMATION
  Report Type: Spontaneous
  Country: CA (occurrence: CA)
  Receive Date: 20221216
  Receipt Date: 20240108
  Transmission Date: 20240410
  Serious: Yes (Other)
  Sender: FDA-Public Use
  Company Number: CA-AUROBINDO-AUR-APL-2022-052277

PATIENT
  Age: 77 Year
  Sex: Male

DRUGS (45)
  1. GABAPENTIN [Suspect]
     Active Substance: GABAPENTIN
     Indication: Parkinsonian rest tremor
     Dosage: UNK
     Route: 065
  2. GABAPENTIN [Suspect]
     Active Substance: GABAPENTIN
     Indication: Parkinson^s disease
  3. GABAPENTIN [Suspect]
     Active Substance: GABAPENTIN
     Indication: Head titubation
  4. GABAPENTIN [Suspect]
     Active Substance: GABAPENTIN
     Indication: Resting tremor
  5. PRAMIPEXOLE [Suspect]
     Active Substance: PRAMIPEXOLE\PRAMIPEXOLE DIHYDROCHLORIDE
     Indication: Parkinson^s disease
     Dosage: 1 MILLIGRAM, 3 TIMES A DAY
     Route: 065
  6. PRAMIPEXOLE [Suspect]
     Active Substance: PRAMIPEXOLE\PRAMIPEXOLE DIHYDROCHLORIDE
     Indication: Parkinsonian rest tremor
  7. PRAMIPEXOLE [Suspect]
     Active Substance: PRAMIPEXOLE\PRAMIPEXOLE DIHYDROCHLORIDE
     Indication: Head titubation
  8. PRAMIPEXOLE [Suspect]
     Active Substance: PRAMIPEXOLE\PRAMIPEXOLE DIHYDROCHLORIDE
     Indication: Resting tremor
  9. AMANTADINE [Suspect]
     Active Substance: AMANTADINE
     Indication: Parkinson^s disease
     Dosage: 100 MILLIGRAM, ONCE A DAY
     Route: 065
  10. AMANTADINE [Suspect]
     Active Substance: AMANTADINE
     Indication: Parkinsonian rest tremor
     Dosage: 200 MILLIGRAM, ONCE A DAY
     Route: 065
  11. AMANTADINE [Suspect]
     Active Substance: AMANTADINE
     Indication: Head titubation
     Dosage: 100 MILLIGRAM, TWO TIMES A DAY
     Route: 065
  12. AMANTADINE [Suspect]
     Active Substance: AMANTADINE
     Indication: Resting tremor
  13. BENSERAZIDE HYDROCHLORIDE\LEVODOPA [Suspect]
     Active Substance: BENSERAZIDE HYDROCHLORIDE\LEVODOPA
     Indication: Parkinson^s disease
     Dosage: UNK, 3 TIMES A DAY
     Route: 065
  14. BENSERAZIDE HYDROCHLORIDE\LEVODOPA [Suspect]
     Active Substance: BENSERAZIDE HYDROCHLORIDE\LEVODOPA
     Indication: Resting tremor
     Dosage: UNK, 3 TIMES A DAY
     Route: 065
  15. CARBIDOPA [Suspect]
     Active Substance: CARBIDOPA
     Indication: Tremor
     Dosage: UNK
     Route: 065
  16. CARBIDOPA [Suspect]
     Active Substance: CARBIDOPA
     Indication: Dysphonia
  17. CLONAZEPAM [Suspect]
     Active Substance: CLONAZEPAM
     Indication: Parkinson^s disease
     Dosage: UNK
     Route: 048
  18. CLONAZEPAM [Suspect]
     Active Substance: CLONAZEPAM
     Indication: Parkinsonian rest tremor
  19. CLONAZEPAM [Suspect]
     Active Substance: CLONAZEPAM
     Indication: Head titubation
  20. PROFENAMINE [Suspect]
     Active Substance: PROFENAMINE
     Indication: Parkinson^s disease
     Dosage: UNK
     Route: 065
  21. PROFENAMINE [Suspect]
     Active Substance: PROFENAMINE
     Indication: Parkinsonian rest tremor
  22. PROFENAMINE [Suspect]
     Active Substance: PROFENAMINE
     Indication: Head titubation
  23. PRIMIDONE [Suspect]
     Active Substance: PRIMIDONE
     Indication: Parkinson^s disease
     Dosage: UNK
     Route: 065
  24. PRIMIDONE [Suspect]
     Active Substance: PRIMIDONE
     Indication: Parkinsonian rest tremor
  25. PRIMIDONE [Suspect]
     Active Substance: PRIMIDONE
     Indication: Head titubation
  26. PRIMIDONE [Suspect]
     Active Substance: PRIMIDONE
     Indication: Resting tremor
  27. PROPRANOLOL [Suspect]
     Active Substance: PROPRANOLOL HYDROCHLORIDE
     Indication: Parkinson^s disease
     Dosage: UNK
     Route: 065
  28. PROPRANOLOL [Suspect]
     Active Substance: PROPRANOLOL HYDROCHLORIDE
     Indication: Parkinsonian rest tremor
  29. PROPRANOLOL [Suspect]
     Active Substance: PROPRANOLOL HYDROCHLORIDE
     Indication: Head titubation
  30. PROPRANOLOL [Suspect]
     Active Substance: PROPRANOLOL HYDROCHLORIDE
     Indication: Resting tremor
  31. ROPINIROLE [Suspect]
     Active Substance: ROPINIROLE
     Indication: Parkinson^s disease
     Dosage: UNK
     Route: 065
  32. ROPINIROLE [Suspect]
     Active Substance: ROPINIROLE
     Indication: Parkinsonian rest tremor
  33. ROPINIROLE [Suspect]
     Active Substance: ROPINIROLE
     Indication: Head titubation
  34. ROPINIROLE [Suspect]
     Active Substance: ROPINIROLE
     Indication: Resting tremor
  35. SELEGILINE [Suspect]
     Active Substance: SELEGILINE
     Indication: Tremor
     Dosage: UNK
     Route: 065
  36. SELEGILINE [Suspect]
     Active Substance: SELEGILINE
     Indication: Dysphonia
  37. TRIHEXYPHENIDYL [Suspect]
     Active Substance: TRIHEXYPHENIDYL
     Indication: Parkinson^s disease
     Dosage: 2 MILLIGRAM, 3 TIMES A DAY
     Route: 065
  38. TRIHEXYPHENIDYL [Suspect]
     Active Substance: TRIHEXYPHENIDYL
     Indication: Parkinsonian rest tremor
  39. TRIHEXYPHENIDYL [Suspect]
     Active Substance: TRIHEXYPHENIDYL
     Indication: Head titubation
  40. CARBIDOPA\LEVODOPA [Suspect]
     Active Substance: CARBIDOPA\LEVODOPA
     Indication: Dysphonia
     Dosage: UNK
     Route: 065
  41. CARBIDOPA\LEVODOPA [Suspect]
     Active Substance: CARBIDOPA\LEVODOPA
     Indication: Tremor
  42. PROFENAMINE HYDROCHLORIDE [Suspect]
     Active Substance: PROFENAMINE HYDROCHLORIDE
     Indication: Resting tremor
     Dosage: UNK
     Route: 065
  43. PROFENAMINE HYDROCHLORIDE [Suspect]
     Active Substance: PROFENAMINE HYDROCHLORIDE
     Indication: Parkinsonian rest tremor
  44. PROFENAMINE HYDROCHLORIDE [Suspect]
     Active Substance: PROFENAMINE HYDROCHLORIDE
     Indication: Parkinson^s disease
  45. PROFENAMINE HYDROCHLORIDE [Suspect]
     Active Substance: PROFENAMINE HYDROCHLORIDE
     Indication: Head titubation

REACTIONS (7)
  - Hallucination [Unknown]
  - Oedema peripheral [Unknown]
  - Somnolence [Unknown]
  - Dizziness [Unknown]
  - Parkinsonian rest tremor [Unknown]
  - Off label use [Unknown]
  - Drug ineffective [Unknown]
